FAERS Safety Report 16075742 (Version 2)
Quarter: 2019Q3

REPORT INFORMATION
  Report Type: Spontaneous
  Country: CZ (occurrence: CZ)
  Receive Date: 20190315
  Receipt Date: 20190725
  Transmission Date: 20191004
  Serious: Yes (Other)
  Sender: FDA-Public Use
  Company Number: CZ-GLAXOSMITHKLINE-CZ2019045573

PATIENT
  Age: 39 Year
  Sex: Male

DRUGS (3)
  1. XADOS [Concomitant]
     Indication: HYPERSENSITIVITY
     Dosage: UNK
     Route: 065
  2. AVAMYS [Suspect]
     Active Substance: FLUTICASONE FUROATE
     Indication: PRODUCT USED FOR UNKNOWN INDICATION
     Dosage: THE DOSAGE TWICE DAILY
     Route: 065
     Dates: start: 201811
  3. AVAMYS [Suspect]
     Active Substance: FLUTICASONE FUROATE
     Dosage: THE DOSAGE TWICE DAILY
     Route: 065
     Dates: start: 201811

REACTIONS (4)
  - Hypertension [Not Recovered/Not Resolved]
  - Nausea [Not Recovered/Not Resolved]
  - Epistaxis [Not Recovered/Not Resolved]
  - Product quality issue [Unknown]

NARRATIVE: CASE EVENT DATE: 201902
